FAERS Safety Report 13102912 (Version 1)
Quarter: 2017Q1

REPORT INFORMATION
  Report Type: Spontaneous
  Country: CA (occurrence: CA)
  Receive Date: 20170110
  Receipt Date: 20170110
  Transmission Date: 20170428
  Serious: Yes (Other)
  Sender: FDA-Public Use
  Company Number: CA-BAXALTA-2017BLT000090

PATIENT
  Sex: Female

DRUGS (1)
  1. GAMMAGARD [Suspect]
     Active Substance: HUMAN IMMUNOGLOBULIN G
     Indication: PRODUCT USED FOR UNKNOWN INDICATION
     Dosage: 65 G, UNK
     Route: 042

REACTIONS (5)
  - Haemoglobin decreased [Recovered/Resolved]
  - Anti A antibody positive [Recovered/Resolved]
  - Acute haemolytic transfusion reaction [Recovered/Resolved]
  - Coombs direct test positive [Recovered/Resolved]
  - Platelet count decreased [Recovered/Resolved]
